FAERS Safety Report 7245199-7 (Version None)
Quarter: 2011Q1

REPORT INFORMATION
  Report Type: 
  Country: None (occurrence: None)
  Receive Date: 20110126
  Receipt Date: 20110118
  Transmission Date: 20110831
  Serious: Yes (Other)
  Sender: FDA-Public Use
  Company Number: PHHO2010CH13255

PATIENT
  Sex: Male
  Weight: 74 kg

DRUGS (3)
  1. FTY 720 [Suspect]
     Dosage: 0.5 MG, QD
     Route: 048
     Dates: start: 20100716, end: 20100902
  2. FTY 720 [Suspect]
     Indication: MULTIPLE SCLEROSIS
     Dosage: DOSE BLINDED
     Route: 048
  3. FTY 720 [Suspect]
     Dosage: 1.25 MG, QD
     Route: 048
     Dates: start: 20090129

REACTIONS (2)
  - SKIN LESION [None]
  - LYMPHOMATOID PAPULOSIS [None]
